FAERS Safety Report 25017422 (Version 1)
Quarter: 2025Q1

REPORT INFORMATION
  Report Type: Spontaneous
  Country: US (occurrence: None)
  Receive Date: 20250226
  Receipt Date: 20250226
  Transmission Date: 20250409
  Serious: No
  Sender: FDA-CTU
  Company Number: None

PATIENT
  Sex: Male

DRUGS (2)
  1. HYRIMOZ [Suspect]
     Active Substance: ADALIMUMAB-ADAZ
     Indication: Crohn^s disease
     Route: 058
     Dates: start: 202404
  2. DUPIXEMT Pm (2-PK) [Concomitant]

REACTIONS (3)
  - Suicide attempt [None]
  - Depression [None]
  - Attention deficit hyperactivity disorder [None]
